FAERS Safety Report 6005546-0 (Version None)
Quarter: 2008Q4

REPORT INFORMATION
  Report Type: 
  Country: None (occurrence: None)
  Receive Date: 20081215
  Receipt Date: 20081209
  Transmission Date: 20090506
  Serious: Yes (Life-Threatening)
  Sender: FDA-Public Use
  Company Number: 2008-188269-NL

PATIENT

DRUGS (1)
  1. VECURONIUM BROMIDE [Suspect]

REACTIONS (4)
  - AGGRESSION [None]
  - RESPIRATORY ARREST [None]
  - SEIZURE ANOXIC [None]
  - WRONG TECHNIQUE IN DRUG USAGE PROCESS [None]
